FAERS Safety Report 4858456-6 (Version None)
Quarter: 2005Q4

REPORT INFORMATION
  Report Type: 
  Country: None (occurrence: None)
  Receive Date: 20051219
  Receipt Date: 20050809
  Transmission Date: 20060501
  Serious: No
  Sender: FDA-Public Use
  Company Number: US-GLAXOSMITHKLINE-A0569969A

PATIENT
  Age: 42 Year
  Sex: Female

DRUGS (2)
  1. NICODERM [Suspect]
     Route: 062
  2. INSULIN [Concomitant]

REACTIONS (1)
  - DRUG INEFFECTIVE [None]
